FAERS Safety Report 8483876 (Version 2)
Quarter: 2013Q2

REPORT INFORMATION
  Report Type: Spontaneous
  Country: GB (occurrence: GB)
  Receive Date: 20120330
  Receipt Date: 20130510
  Transmission Date: 20140414
  Serious: Yes (Hospitalization, Other)
  Sender: FDA-Public Use
  Company Number: GB-BRISTOL-MYERS SQUIBB COMPANY-16476293

PATIENT
  Age: 46 Year
  Sex: Male

DRUGS (1)
  1. YERVOY [Suspect]
     Indication: METASTATIC MALIGNANT MELANOMA
     Dosage: CYCLE 3 OF 4 ALSO ON:29FEB2012,AND 29MAR12.
     Route: 042
     Dates: start: 20120208, end: 20120321

REACTIONS (3)
  - Convulsion [Unknown]
  - Malignant neoplasm progression [Unknown]
  - Fatigue [Unknown]
